FAERS Safety Report 5325489-5 (Version None)
Quarter: 2007Q2

REPORT INFORMATION
  Report Type: 
  Country: None (occurrence: None)
  Receive Date: 20070515
  Receipt Date: 20070503
  Transmission Date: 20071010
  Serious: Yes (Hospitalization)
  Sender: FDA-Public Use
  Company Number: GB-ASTRAZENECA-2006GB00013

PATIENT
  Age: 72 Year
  Sex: Female
  Weight: 56 kg

DRUGS (3)
  1. OMEPRAZOLE [Suspect]
     Indication: GASTROOESOPHAGEAL REFLUX DISEASE
     Route: 048
     Dates: start: 20050912, end: 20050915
  2. SYMBICORT [Concomitant]
     Dosage: 200/6 UG 2 PUFF TWICE DAILY
     Route: 055
     Dates: start: 20040707
  3. VENTOLIN [Concomitant]
     Route: 055
     Dates: start: 20011210

REACTIONS (5)
  - ANAEMIA HAEMOLYTIC AUTOIMMUNE [None]
  - EOSINOPHILIA [None]
  - HYPERSENSITIVITY [None]
  - JAUNDICE [None]
  - RASH PRURITIC [None]
